FAERS Safety Report 18330173 (Version 1)
Quarter: 2020Q3

REPORT INFORMATION
  Report Type: Spontaneous
  Country: DE (occurrence: DE)
  Receive Date: 20200930
  Receipt Date: 20200930
  Transmission Date: 20201103
  Serious: Yes (Other)
  Sender: FDA-Public Use
  Company Number: NVSC2020DE257992

PATIENT
  Age: 0 Day
  Sex: Female
  Weight: 4.4 kg

DRUGS (8)
  1. HCT [Concomitant]
     Active Substance: HYDROCHLOROTHIAZIDE
     Dosage: UNK
     Route: 064
     Dates: start: 20200625
  2. TORASEMID [Concomitant]
     Active Substance: TORSEMIDE
     Indication: FOETAL EXPOSURE DURING PREGNANCY
     Dosage: UNK
     Route: 064
     Dates: start: 20191014
  3. HCT [Concomitant]
     Active Substance: HYDROCHLOROTHIAZIDE
     Indication: FOETAL EXPOSURE DURING PREGNANCY
     Dosage: UNK
     Route: 064
     Dates: start: 20191014
  4. TORASEMID [Concomitant]
     Active Substance: TORSEMIDE
     Dosage: UNK
     Route: 064
     Dates: start: 20200625
  5. PREDNISOLONE. [Suspect]
     Active Substance: PREDNISOLONE
     Indication: FOETAL EXPOSURE DURING PREGNANCY
     Dosage: 10 [MG/D ]
     Route: 064
     Dates: start: 20191014
  6. PREDNISOLONE. [Suspect]
     Active Substance: PREDNISOLONE
     Dosage: 10 [MG/D ]
     Route: 064
     Dates: start: 20200625
  7. AZATHIOPRINE. [Concomitant]
     Active Substance: AZATHIOPRINE
     Dosage: 100 [MG/D ]/ INITIAL 50MG DAILY, INCREASED TO 100MG/D
     Route: 064
     Dates: start: 20200625
  8. AZATHIOPRINE. [Concomitant]
     Active Substance: AZATHIOPRINE
     Indication: FOETAL EXPOSURE DURING PREGNANCY
     Dosage: 100 [MG/D ]/ INITIAL 50MG DAILY, INCREASED TO 100MG/D
     Route: 064
     Dates: start: 20191014

REACTIONS (6)
  - Large for dates baby [Recovered/Resolved]
  - Hypoglycaemia neonatal [Recovered/Resolved]
  - Cardiac septal hypertrophy [Unknown]
  - Foetal exposure during pregnancy [Unknown]
  - Premature baby [Recovered/Resolved]
  - Atrial septal defect [Unknown]

NARRATIVE: CASE EVENT DATE: 20200625
